FAERS Safety Report 25937865 (Version 1)
Quarter: 2025Q4

REPORT INFORMATION
  Report Type: Spontaneous
  Country: GB (occurrence: GB)
  Receive Date: 20251018
  Receipt Date: 20251018
  Transmission Date: 20260117
  Serious: Yes (Other)
  Sender: ACCORD
  Company Number: None

PATIENT
  Sex: Female

DRUGS (2)
  1. LISINOPRIL [Interacting]
     Active Substance: LISINOPRIL
     Indication: Product used for unknown indication
  2. ROSUVASTATIN CALCIUM [Interacting]
     Active Substance: ROSUVASTATIN CALCIUM
     Indication: Product used for unknown indication

REACTIONS (8)
  - Cough [Unknown]
  - Rash erythematous [Unknown]
  - Muscle atrophy [Unknown]
  - Panic attack [Unknown]
  - Muscle spasms [Unknown]
  - Diarrhoea [Unknown]
  - Rhinorrhoea [Unknown]
  - Rash pruritic [Unknown]
